FAERS Safety Report 5386745-8 (Version None)
Quarter: 2007Q3

REPORT INFORMATION
  Report Type: 
  Country: None (occurrence: None)
  Receive Date: 20070713
  Receipt Date: 20070704
  Transmission Date: 20080115
  Serious: Yes (Other)
  Sender: FDA-Public Use
  Company Number: GB-BAUSCH-2007BL002244

PATIENT
  Age: 57 Year
  Sex: Male

DRUGS (4)
  1. MINIMS DEXAMETHASONE SODIUM PHOSPHATE 0.1% [Suspect]
     Indication: ALLOGENIC BONE MARROW TRANSPLANTATION THERAPY
  2. CYCLOSPORINE [Suspect]
     Indication: ALLOGENIC BONE MARROW TRANSPLANTATION THERAPY
  3. CYCLOSPORINE [Suspect]
  4. THALIDOMIDE [Suspect]
     Indication: DRUG USE FOR UNKNOWN INDICATION

REACTIONS (3)
  - GRAFT VERSUS HOST DISEASE [None]
  - SOMNOLENCE [None]
  - SQUAMOUS CELL CARCINOMA [None]
